FAERS Safety Report 8578269 (Version 5)
Quarter: 2012Q4

REPORT INFORMATION
  Report Type: Report from Study
  Country: FR (occurrence: FR)
  Receive Date: 20120524
  Receipt Date: 20120917
  Transmission Date: 20130627
  Serious: Yes (Other)
  Sender: FDA-Public Use
  Company Number: FR-ROCHE-1069024

PATIENT
  Age: 41 Year
  Sex: Female
  Weight: 82 kg

DRUGS (11)
  1. VISMODEGIB [Suspect]
     Indication: BASAL CELL CARCINOMA
     Dosage: last dose prior to sae: 06 May 2012
     Route: 048
     Dates: start: 20120301, end: 20120509
  2. PARACETAMOL [Suspect]
     Indication: PYREXIA
     Route: 065
     Dates: start: 20120505, end: 20120509
  3. VITAMIN C [Suspect]
     Indication: PYREXIA
     Route: 065
     Dates: start: 20120505, end: 20120506
  4. FUCIDIN [Concomitant]
     Indication: PROPHYLAXIS
     Route: 065
     Dates: start: 20120327, end: 20120405
  5. FUCIDIN [Concomitant]
     Route: 065
     Dates: start: 20120505, end: 20120506
  6. HUMALOG MIX25 [Concomitant]
     Indication: DIABETES MELLITUS
     Dosage: TDD: 3 to 4 time
     Route: 065
     Dates: start: 20090101
  7. STAGID [Concomitant]
     Indication: DIABETES MELLITUS
     Route: 065
     Dates: start: 20000101
  8. JANUVIA [Concomitant]
     Indication: DIABETES MELLITUS
     Route: 065
     Dates: start: 20110101
  9. INEGY [Concomitant]
     Indication: DIABETES MELLITUS
     Route: 065
     Dates: start: 20051003
  10. GLIMEPIRIDE [Concomitant]
     Indication: DIABETES MELLITUS
     Route: 065
  11. DELURSAN [Concomitant]
     Indication: CHOLESTASIS
     Route: 065
     Dates: start: 20111201

REACTIONS (1)
  - Hepatocellular injury [Recovered/Resolved with Sequelae]
